FAERS Safety Report 8185626 (Version 2)
Quarter: 2012Q4

REPORT INFORMATION
  Report Type: 
  Country: US (occurrence: US)
  Receive Date: 20111018
  Receipt Date: 20121115
  Transmission Date: 20130627
  Serious: No
  Sender: FDA-Public Use
  Company Number: US-ASTRAZENECA-2010SE59223

PATIENT
  Age: 65 Year
  Sex: Male

DRUGS (4)
  1. SYMBICORT PMDI [Suspect]
     Indication: CHRONIC OBSTRUCTIVE PULMONARY DISEASE
     Dosage: 4 PUFFS A DAY
     Route: 055
  2. SYMBICORT PMDI [Suspect]
     Indication: ASTHMA
     Dosage: 4 PUFFS A DAY
     Route: 055
  3. SYMBICORT PMDI [Suspect]
     Indication: CHRONIC OBSTRUCTIVE PULMONARY DISEASE
     Dosage: 6 PUFFS A DAY
     Route: 055
  4. SYMBICORT PMDI [Suspect]
     Indication: ASTHMA
     Dosage: 6 PUFFS A DAY
     Route: 055

REACTIONS (3)
  - Dysphonia [Unknown]
  - Oropharyngeal pain [Unknown]
  - Intentional drug misuse [Unknown]
